FAERS Safety Report 5747490-X (Version None)
Quarter: 2008Q2

REPORT INFORMATION
  Report Type: 
  Country: None (occurrence: None)
  Receive Date: 20080523
  Receipt Date: 20080508
  Transmission Date: 20081010
  Serious: Yes (Other)
  Sender: FDA-Public Use
  Company Number: US-BAYER-US-2007-013826

PATIENT
  Age: 40 Year
  Sex: Female
  Weight: 52 kg

DRUGS (5)
  1. BETASERON [Suspect]
     Indication: RELAPSING-REMITTING MULTIPLE SCLEROSIS
     Route: 058
     Dates: start: 20070303
  2. BETASERON [Suspect]
     Dosage: TOTAL DAILY DOSE: 6 MIU
     Route: 058
     Dates: end: 20070411
  3. ALLEGRA [Concomitant]
     Route: 048
  4. NAPROSYN [Concomitant]
     Indication: MENSTRUAL DISCOMFORT
  5. COPAXONE [Concomitant]
     Dates: start: 20070525

REACTIONS (7)
  - HYPOAESTHESIA [None]
  - MULTIPLE SCLEROSIS [None]
  - PAIN [None]
  - PAIN IN EXTREMITY [None]
  - PARAESTHESIA [None]
  - PHOTOPSIA [None]
  - RETINAL EXUDATES [None]
